FAERS Safety Report 16307065 (Version 1)
Quarter: 2019Q2

REPORT INFORMATION
  Report Type: Spontaneous
  Country: US (occurrence: US)
  Receive Date: 20190513
  Receipt Date: 20190513
  Transmission Date: 20190711
  Serious: No
  Sender: FDA-Public Use
  Company Number: US-ASTRAZENECA-2019SE61432

PATIENT
  Age: 27585 Day
  Sex: Male
  Weight: 76.2 kg

DRUGS (1)
  1. TAGRISSO [Suspect]
     Active Substance: OSIMERTINIB
     Indication: LUNG NEOPLASM MALIGNANT
     Route: 048
     Dates: start: 201902

REACTIONS (1)
  - Tumour marker increased [Unknown]

NARRATIVE: CASE EVENT DATE: 20190415
